FAERS Safety Report 23955215 (Version 1)
Quarter: 2024Q2

REPORT INFORMATION
  Report Type: Spontaneous
  Country: PR (occurrence: PR)
  Receive Date: 20240610
  Receipt Date: 20240610
  Transmission Date: 20240716
  Serious: No
  Sender: FDA-Public Use
  Company Number: PR-JNJFOC-20240605308

PATIENT
  Sex: Male

DRUGS (2)
  1. XARELTO [Suspect]
     Active Substance: RIVAROXABAN
     Indication: Product used for unknown indication
     Route: 048
  2. XARELTO [Suspect]
     Active Substance: RIVAROXABAN
     Route: 048
     Dates: start: 202405

REACTIONS (2)
  - Blood pressure decreased [Unknown]
  - Heat stroke [Unknown]
